FAERS Safety Report 4400654-X (Version None)
Quarter: 2004Q3

REPORT INFORMATION
  Report Type: 
  Country: None (occurrence: None)
  Receive Date: 20040716
  Receipt Date: 20040716
  Transmission Date: 20050211
  Serious: Yes (Other)
  Sender: FDA-Public Use
  Company Number: None

PATIENT
  Sex: Female

DRUGS (1)
  1. AMINO-CERV CERVICAL CREME (2 3/4 OZ TUBE) [Suspect]
     Indication: THERAPEUTIC PROCEDURE
     Dosage: 1 DOSE/ONCE/CERVICAL
     Dates: start: 20040413, end: 20040414

REACTIONS (2)
  - BURNING SENSATION [None]
  - HYPERSENSITIVITY [None]
